FAERS Safety Report 10038839 (Version 1)
Quarter: 2014Q1

REPORT INFORMATION
  Report Type: Spontaneous
  Country: GB (occurrence: GB)
  Receive Date: 20140326
  Receipt Date: 20140326
  Transmission Date: 20141002
  Serious: Yes (Other)
  Sender: FDA-Public Use
  Company Number: GB-WATSON-2014-05373

PATIENT
  Age: 77 Year
  Sex: Female
  Weight: 93 kg

DRUGS (1)
  1. ALENDRONIC ACID (UNKNOWN) [Suspect]
     Indication: PRODUCT USED FOR UNKNOWN INDICATION
     Dosage: UNK
     Route: 065
     Dates: start: 20100205

REACTIONS (1)
  - Alopecia areata [Recovered/Resolved]
